FAERS Safety Report 7574244-4 (Version None)
Quarter: 2011Q2

REPORT INFORMATION
  Report Type: 
  Country: None (occurrence: None)
  Receive Date: 20110627
  Receipt Date: 20110512
  Transmission Date: 20111010
  Serious: No
  Sender: FDA-Public Use
  Company Number: US-BAYER-2011-042363

PATIENT
  Age: 27 Year
  Sex: Female

DRUGS (1)
  1. ALEVE (CAPLET) [Suspect]
     Indication: NASOPHARYNGITIS
     Dosage: 2 DF, TID
     Route: 048
     Dates: start: 20110510, end: 20110512

REACTIONS (2)
  - NO ADVERSE EVENT [None]
  - ABDOMINAL PAIN UPPER [None]
